FAERS Safety Report 15731341 (Version 5)
Quarter: 2019Q1

REPORT INFORMATION
  Report Type: Spontaneous
  Country: PL (occurrence: PL)
  Receive Date: 20181217
  Receipt Date: 20190218
  Transmission Date: 20190417
  Serious: Yes (Death, Life-Threatening, Hospitalization, Other)
  Sender: FDA-Public Use
  Company Number: PL-JNJFOC-20181212240

PATIENT
  Age: 70 Year
  Sex: Male

DRUGS (14)
  1. DALTEPARIN [Suspect]
     Active Substance: DALTEPARIN
     Indication: MYOCARDIAL INFARCTION
     Route: 065
  2. CISPLATIN. [Suspect]
     Active Substance: CISPLATIN
     Indication: BLADDER TRANSITIONAL CELL CARCINOMA
     Route: 065
     Dates: start: 201606
  3. ABIRATERONE ACETATE. [Suspect]
     Active Substance: ABIRATERONE ACETATE
     Indication: PROSTATE CANCER
     Route: 048
     Dates: start: 201703
  4. ABIRATERONE ACETATE. [Suspect]
     Active Substance: ABIRATERONE ACETATE
     Indication: BLADDER TRANSITIONAL CELL CARCINOMA
     Route: 048
     Dates: start: 201703
  5. ACETYLSALICYLIC ACID [Suspect]
     Active Substance: ASPIRIN
     Indication: MYOCARDIAL INFARCTION
     Route: 065
     Dates: start: 201704
  6. ACETYLSALICYLIC ACID [Suspect]
     Active Substance: ASPIRIN
     Indication: ANTIPLATELET THERAPY
     Route: 065
     Dates: start: 201704
  7. CISPLATIN. [Suspect]
     Active Substance: CISPLATIN
     Indication: PROSTATE CANCER
     Route: 065
     Dates: start: 201606
  8. CISPLATIN. [Suspect]
     Active Substance: CISPLATIN
     Indication: PROSTATE CANCER
     Route: 065
     Dates: start: 201504, end: 201509
  9. ATORVASTATIN [Concomitant]
     Active Substance: ATORVASTATIN
     Indication: HYPERCHOLESTEROLAEMIA
     Route: 065
  10. CLOPIDOGREL BISULFATE. [Suspect]
     Active Substance: CLOPIDOGREL BISULFATE
     Indication: ANTIPLATELET THERAPY
     Route: 065
     Dates: start: 201704
  11. GEMCITABINE [Suspect]
     Active Substance: GEMCITABINE\GEMCITABINE HYDROCHLORIDE
     Indication: BLADDER TRANSITIONAL CELL CARCINOMA
     Route: 065
     Dates: start: 201606
  12. DOCETAXEL. [Suspect]
     Active Substance: DOCETAXEL
     Indication: BLADDER TRANSITIONAL CELL CARCINOMA
     Route: 065
     Dates: start: 201504, end: 201509
  13. CISPLATIN. [Suspect]
     Active Substance: CISPLATIN
     Indication: BLADDER TRANSITIONAL CELL CARCINOMA
     Route: 065
     Dates: start: 201504, end: 201509
  14. GEMCITABINE [Suspect]
     Active Substance: GEMCITABINE\GEMCITABINE HYDROCHLORIDE
     Indication: PROSTATE CANCER
     Route: 065
     Dates: start: 201606

REACTIONS (4)
  - Drug ineffective [Unknown]
  - Coronary artery stenosis [Recovering/Resolving]
  - Haemorrhage urinary tract [Unknown]
  - Acute myocardial infarction [Recovering/Resolving]

NARRATIVE: CASE EVENT DATE: 201704
